FAERS Safety Report 17456829 (Version 2)
Quarter: 2020Q1

REPORT INFORMATION
  Report Type: Spontaneous
  Country: TW (occurrence: TW)
  Receive Date: 20200225
  Receipt Date: 20200313
  Transmission Date: 20200409
  Serious: Yes (Hospitalization, Other)
  Sender: FDA-Public Use
  Company Number: TW-ASTRAZENECA-2020SE26269

PATIENT
  Age: 57 Year
  Sex: Male
  Weight: 85 kg

DRUGS (4)
  1. AMARYL [Concomitant]
     Active Substance: GLIMEPIRIDE
     Dates: start: 201910
  2. INSULIN [Concomitant]
     Active Substance: INSULIN NOS
     Dates: start: 201910
  3. XIGDUO XR [Suspect]
     Active Substance: DAPAGLIFLOZIN PROPANEDIOL\METFORMIN HYDROCHLORIDE
     Indication: TYPE 2 DIABETES MELLITUS
     Dosage: 10/1000MG DAILY
     Route: 048
     Dates: start: 201910
  4. FORXIGA [Suspect]
     Active Substance: DAPAGLIFLOZIN
     Dosage: UNKNOWN
     Route: 048

REACTIONS (6)
  - Fournier^s gangrene [Unknown]
  - Diabetes mellitus inadequate control [Unknown]
  - Necrotising fasciitis [Unknown]
  - Diabetic foot [Unknown]
  - Hepatic steatosis [Unknown]
  - Toe amputation [Unknown]

NARRATIVE: CASE EVENT DATE: 2017
